FAERS Safety Report 6572571-0 (Version None)
Quarter: 2010Q1

REPORT INFORMATION
  Report Type: 
  Country: None (occurrence: None)
  Receive Date: 20100205
  Receipt Date: 20100128
  Transmission Date: 20100710
  Serious: Yes (Hospitalization)
  Sender: FDA-Public Use
  Company Number: GXKR2010DE01263

PATIENT
  Age: 66 Year
  Sex: Male
  Weight: 83.6 kg

DRUGS (14)
  1. THIAMAZOLE (NGX) [Suspect]
     Indication: HYPERTHYROIDISM
     Dosage: 15 MG, QD
     Route: 048
     Dates: start: 20090701
  2. PREDNISOLONE [Interacting]
     Indication: RENAL TRANSPLANT
     Dosage: 5 MG, QD
     Route: 048
     Dates: start: 20090701
  3. SANDIMMUNE [Suspect]
     Indication: RENAL TRANSPLANT
     Dosage: 225 MG, BID
     Route: 048
     Dates: start: 20090701
  4. CELLCEPT [Suspect]
     Indication: RENAL TRANSPLANT
     Dosage: 1000 MG, BID
     Route: 048
     Dates: start: 20090701
  5. VALCYTE [Suspect]
     Indication: OPPORTUNISTIC INFECTION PROPHYLAXIS
     Dosage: 450 MG, QD
     Route: 048
     Dates: start: 20091002
  6. PANTOZOL [Concomitant]
  7. CARVEDILOL [Concomitant]
  8. LOCOL [Concomitant]
  9. MIRCERA [Concomitant]
  10. BICANORM (SODIUM BICARBONATE) [Concomitant]
  11. CALCIMAGON-D3 [Concomitant]
  12. INSULIN [Concomitant]
  13. ACETYLSALICYLIC ACID [Concomitant]
  14. PLAVIX [Concomitant]

REACTIONS (2)
  - CYTOMEGALOVIRUS INFECTION [None]
  - LEUKOPENIA [None]
